FAERS Safety Report 5412858-8 (Version None)
Quarter: 2007Q3

REPORT INFORMATION
  Report Type: 
  Country: None (occurrence: None)
  Receive Date: 20070713
  Receipt Date: 20070509
  Transmission Date: 20080115
  Serious: No
  Sender: FDA-Public Use
  Company Number: 2007SP001728

PATIENT
  Age: 83 Year
  Sex: Female
  Weight: 83.0083 kg

DRUGS (9)
  1. LUNESTA [Suspect]
     Indication: INSOMNIA
     Dosage: 3 MG; ORAL,  6 MG; ORAL  , 9 MG; ORAL
     Route: 048
     Dates: start: 20060130, end: 20060219
  2. LUNESTA [Suspect]
     Indication: INSOMNIA
     Dosage: 3 MG; ORAL,  6 MG; ORAL  , 9 MG; ORAL
     Route: 048
     Dates: start: 20060220, end: 20070501
  3. LUNESTA [Suspect]
     Indication: INSOMNIA
     Dosage: 3 MG; ORAL,  6 MG; ORAL  , 9 MG; ORAL
     Route: 048
     Dates: start: 20070501
  4. PREVACID [Concomitant]
  5. DICLOFENAC [Concomitant]
  6. PROPAFENONE HCL [Concomitant]
  7. LASIX [Concomitant]
  8. ALTACE [Concomitant]
  9. AMLODIPINE [Concomitant]

REACTIONS (2)
  - DRUG INEFFECTIVE [None]
  - INSOMNIA [None]
